FAERS Safety Report 19570069 (Version 2)
Quarter: 2021Q3

REPORT INFORMATION
  Report Type: Spontaneous
  Country: CN (occurrence: CN)
  Receive Date: 20210716
  Receipt Date: 20210802
  Transmission Date: 20211014
  Serious: Yes (Disabling, Other)
  Sender: FDA-Public Use
  Company Number: CN-PFIZER INC-2021831853

PATIENT
  Age: 48 Year
  Sex: Male
  Weight: 60 kg

DRUGS (6)
  1. ZAVEDOS [Suspect]
     Active Substance: IDARUBICIN
     Dosage: 10.000 MG, 1X/DAY
     Route: 041
     Dates: start: 20210520, end: 20210520
  2. SODIUM CHLORIDE 0.9% [Concomitant]
     Active Substance: SODIUM CHLORIDE
     Dosage: 250.000 ML, 1X/DAY
     Route: 041
     Dates: start: 20210520, end: 20210520
  3. CYTARABINE. [Suspect]
     Active Substance: CYTARABINE
     Indication: ACUTE PROMYELOCYTIC LEUKAEMIA
     Dosage: 5.200 G, 2X/DAY
     Route: 041
     Dates: start: 20210519, end: 20210522
  4. ZAVEDOS [Suspect]
     Active Substance: IDARUBICIN
     Indication: ACUTE PROMYELOCYTIC LEUKAEMIA
     Dosage: 20.000 MG, 1X/DAY
     Route: 041
     Dates: start: 20210519, end: 20210519
  5. SODIUM CHLORIDE 0.9% [Concomitant]
     Active Substance: SODIUM CHLORIDE
     Indication: VEHICLE SOLUTION USE
     Dosage: 500.000 ML, 2X/DAY
     Route: 041
     Dates: start: 20210519, end: 20210522
  6. SODIUM CHLORIDE 0.9% [Concomitant]
     Active Substance: SODIUM CHLORIDE
     Indication: VEHICLE SOLUTION USE
     Dosage: 250.000 ML, 1X/DAY
     Route: 041
     Dates: start: 20210519, end: 20210519

REACTIONS (5)
  - White blood cell count decreased [Recovering/Resolving]
  - Granulocyte count decreased [Recovering/Resolving]
  - Myelosuppression [Recovering/Resolving]
  - Platelet count decreased [Recovering/Resolving]
  - Off label use [Unknown]

NARRATIVE: CASE EVENT DATE: 20210525
